FAERS Safety Report 18467422 (Version 1)
Quarter: 2020Q4

REPORT INFORMATION
  Report Type: Spontaneous
  Country: US (occurrence: US)
  Receive Date: 20201105
  Receipt Date: 20201105
  Transmission Date: 20210114
  Serious: No
  Sender: FDA-Public Use
  Company Number: US-SUN PHARMACEUTICAL INDUSTRIES LTD-2019R1-224168

PATIENT
  Sex: Female

DRUGS (1)
  1. LORATADINE AND PSEUDOEPHEDRINE SULFATE [Suspect]
     Active Substance: LORATADINE\PSEUDOEPHEDRINE SULFATE
     Indication: DYSPNOEA
     Dosage: 1 YESTERDAY MORNING AND 1 THIS MORNING
     Route: 065
     Dates: start: 20191006

REACTIONS (2)
  - Chest discomfort [Unknown]
  - Insomnia [Unknown]
